FAERS Safety Report 13411553 (Version 1)
Quarter: 2017Q2

REPORT INFORMATION
  Report Type: Spontaneous
  Country: ZA (occurrence: ZA)
  Receive Date: 20170406
  Receipt Date: 20170406
  Transmission Date: 20170830
  Serious: Yes (Hospitalization)
  Sender: FDA-Public Use
  Company Number: ZA-LUPIN PHARMACEUTICALS INC.-2017-01586

PATIENT
  Sex: Male

DRUGS (8)
  1. ALVESCO [Suspect]
     Active Substance: CICLESONIDE
     Indication: ASTHMA
     Dosage: 160 MCG, QD
     Route: 048
     Dates: start: 20160922
  2. PEPLOC (PANTOPTAZOLE SODIUM) [Suspect]
     Active Substance: PANTOPRAZOLE SODIUM
     Indication: ULCER
     Dosage: 40 MG, QD
     Route: 048
     Dates: start: 20160922
  3. LYRICA [Suspect]
     Active Substance: PREGABALIN
     Indication: EPILEPSY
     Dosage: 775 MG, QD
     Route: 048
     Dates: start: 20160922
  4. ELTROXIN [Suspect]
     Active Substance: LEVOTHYROXINE
     Indication: THYROID DISORDER
     Dosage: 50 MCG, QD
     Route: 048
     Dates: start: 20160922
  5. CONVULEX [Suspect]
     Active Substance: VALPROIC ACID
     Indication: EPILEPSY
     Dosage: 300 MG, QD
     Route: 048
     Dates: start: 20160922
  6. SIMVASTATIN. [Suspect]
     Active Substance: SIMVASTATIN
     Indication: BLOOD CHOLESTEROL
     Dosage: 20 MG, QD
     Route: 048
     Dates: start: 20160922
  7. ELTROXIN [Suspect]
     Active Substance: LEVOTHYROXINE
     Dosage: 100 MCG, QD
     Route: 048
     Dates: start: 20160922
  8. ARCOXIA [Suspect]
     Active Substance: ETORICOXIB
     Indication: PAIN
     Dosage: 60 MG, QD
     Route: 048
     Dates: start: 20160922

REACTIONS (2)
  - Dysuria [Unknown]
  - Hypervitaminosis [Unknown]
